FAERS Safety Report 4758672-8 (Version None)
Quarter: 2005Q3

REPORT INFORMATION
  Report Type: 
  Country: None (occurrence: None)
  Receive Date: 20050829
  Receipt Date: 20050816
  Transmission Date: 20060218
  Serious: Yes (Hospitalization)
  Sender: FDA-Public Use
  Company Number: SGB1-2005-00202

PATIENT
  Age: 71 Year
  Sex: Female

DRUGS (14)
  1. LANTHANUM CARBONATE (LANTHANUM CARBONATE) TABLET CHEWABLE [Suspect]
     Indication: HYPERPHOSPHATAEMIA
     Dosage: 1500MG/DAILY, ORAL
     Route: 048
     Dates: start: 20041118, end: 20050223
  2. PANTOPRAZOLE SODIUM [Concomitant]
  3. DIOVAN HCT [Concomitant]
  4. ALLOPURINOL [Concomitant]
  5. VITARENAL [Concomitant]
  6. RESONIUM [Concomitant]
  7. TAREGIL [Concomitant]
  8. NOVALGIN [Concomitant]
  9. NORVASC/GRC/(AMLODIPINE) [Concomitant]
  10. RENAGEL [Concomitant]
  11. EURTHYROX [Concomitant]
  12. BEXTRA [Concomitant]
  13. VALORAN(CEFOTAXIME SODIUM) [Concomitant]
  14. BIAXIN [Concomitant]

REACTIONS (22)
  - ANOREXIA [None]
  - BLOOD ALKALINE PHOSPHATASE INCREASED [None]
  - BLOOD CALCIUM DECREASED [None]
  - BLOOD CREATINE INCREASED [None]
  - BLOOD UREA DECREASED [None]
  - BONE PAIN [None]
  - BUNDLE BRANCH BLOCK LEFT [None]
  - C-REACTIVE PROTEIN INCREASED [None]
  - CHEST PAIN [None]
  - DIARRHOEA [None]
  - DYSPEPSIA [None]
  - DYSPHAGIA [None]
  - ELECTROCARDIOGRAM POOR R-WAVE PROGRESSION [None]
  - GASTRITIS [None]
  - HIATUS HERNIA [None]
  - HYPERPLASIA [None]
  - NAUSEA [None]
  - PRURITUS GENERALISED [None]
  - SINUS RHYTHM [None]
  - THIRST [None]
  - VOMITING [None]
  - WEIGHT DECREASED [None]
